FAERS Safety Report 7219739-8 (Version None)
Quarter: 2011Q1

REPORT INFORMATION
  Report Type: 
  Country: None (occurrence: None)
  Receive Date: 20110111
  Receipt Date: 20110103
  Transmission Date: 20110831
  Serious: Yes (Hospitalization)
  Sender: FDA-Public Use
  Company Number: US-JNJFOC-20110100407

PATIENT
  Sex: Female
  Weight: 48.4 kg

DRUGS (8)
  1. REMICADE [Suspect]
     Route: 042
  2. REMICADE [Suspect]
     Route: 042
  3. MESALAMINE [Concomitant]
     Route: 048
  4. PREDNISONE [Concomitant]
  5. REMICADE [Suspect]
     Indication: COLITIS ULCERATIVE
     Route: 042
  6. METRONIDAZOLE [Concomitant]
  7. REMICADE [Suspect]
     Route: 042
  8. MERCAPTOPURINE [Concomitant]

REACTIONS (2)
  - COLITIS ULCERATIVE [None]
  - HAEMOGLOBIN DECREASED [None]
